FAERS Safety Report 8350280-5 (Version None)
Quarter: 2012Q2

REPORT INFORMATION
  Report Type: 
  Country: None (occurrence: None)
  Receive Date: 20120510
  Receipt Date: 20120510
  Transmission Date: 20120825
  Serious: Yes (Death, Other)
  Sender: FDA-Public Use
  Company Number: ID-BAYER-2012-045410

PATIENT
  Age: 36 Year
  Sex: Male

DRUGS (1)
  1. NEXAVAR [Suspect]
     Indication: HEPATIC NEOPLASM MALIGNANT
     Dosage: 200 MG, BID
     Route: 048
     Dates: start: 20120409

REACTIONS (6)
  - DEATH [None]
  - BLOOD BILIRUBIN INCREASED [None]
  - DRY SKIN [None]
  - HALLUCINATION [None]
  - OEDEMA PERIPHERAL [None]
  - DRY MOUTH [None]
